FAERS Safety Report 5284667-4 (Version None)
Quarter: 2007Q2

REPORT INFORMATION
  Report Type: 
  Country: None (occurrence: None)
  Receive Date: 20070403
  Receipt Date: 20070322
  Transmission Date: 20071010
  Serious: Yes (Other)
  Sender: FDA-Public Use
  Company Number: JP-ROCHE-485390

PATIENT
  Age: 28 Year
  Sex: Female
  Weight: 54 kg

DRUGS (4)
  1. TAMIFLU [Suspect]
     Indication: INFLUENZA
     Route: 048
     Dates: start: 20070220, end: 20070223
  2. DASEN [Concomitant]
     Route: 048
     Dates: start: 20070220, end: 20070223
  3. CALONAL [Concomitant]
     Dosage: TAKEN AS NEEDED
     Route: 048
  4. AZUNOL [Concomitant]
     Dosage: ROUTE REPORTED AS OROPHARINGEAL DOSE FORM REPORTED AS GARGLE
     Route: 050

REACTIONS (5)
  - ABNORMAL BEHAVIOUR [None]
  - EUPHORIC MOOD [None]
  - INSOMNIA [None]
  - MOOD ALTERED [None]
  - THIRST [None]
